FAERS Safety Report 11737862 (Version 1)
Quarter: 2015Q4

REPORT INFORMATION
  Report Type: Spontaneous
  Country: US (occurrence: US)
  Receive Date: 20151110
  Receipt Date: 20151110
  Transmission Date: 20160304
  Serious: No
  Sender: FDA-Public Use
  Company Number: US-ELI_LILLY_AND_COMPANY-US201202006884

PATIENT
  Age: 62 Year
  Sex: Female

DRUGS (3)
  1. FORTEO [Suspect]
     Active Substance: TERIPARATIDE
     Dosage: 20 UG, QD
  2. FORTEO [Suspect]
     Active Substance: TERIPARATIDE
     Indication: OSTEOPOROSIS
     Dosage: 20 UG, QD
  3. FORTEO [Suspect]
     Active Substance: TERIPARATIDE
     Dosage: 20 UG, QD

REACTIONS (11)
  - Lower respiratory tract infection [Unknown]
  - Fatigue [Recovered/Resolved]
  - Restless legs syndrome [Recovered/Resolved]
  - Upper respiratory tract infection [Unknown]
  - Breath sounds abnormal [Unknown]
  - Lethargy [Recovered/Resolved]
  - Underdose [Recovered/Resolved]
  - Pyrexia [Unknown]
  - Oropharyngeal pain [Unknown]
  - Anxiety [Not Recovered/Not Resolved]
  - Constipation [Unknown]

NARRATIVE: CASE EVENT DATE: 20120222
